FAERS Safety Report 6518665-7 (Version None)
Quarter: 2009Q4

REPORT INFORMATION
  Report Type: 
  Country: None (occurrence: None)
  Receive Date: 20091228
  Receipt Date: 20091218
  Transmission Date: 20100525
  Serious: Yes (Other)
  Sender: FDA-Public Use
  Company Number: JP-ROCHE-674240

PATIENT
  Age: 9 Year
  Sex: Male
  Weight: 29 kg

DRUGS (9)
  1. TAMIFLU [Suspect]
     Indication: INFLUENZA
     Dosage: DRUG NAME: TAMIFLU DRY SYRUP 3% (OSELTAMIVIR).
     Route: 048
     Dates: start: 20080101
  2. TAMIFLU [Suspect]
     Dosage: DRUG NAME: TAMIFLU DRY SYRUP 3% (OSELTAMIVIR).
     Route: 048
     Dates: start: 20090301
  3. TAMIFLU [Suspect]
     Dosage: DRUG NAME: TAMIFLU DRY SYRUP 3% (OSELTAMIVIR).
     Route: 048
     Dates: start: 20091124, end: 20091124
  4. TAMIFLU [Suspect]
     Dosage: DRUG NAME: TAMIFLU DRY SYRUP 3% (OSELTAMIVIR).
     Route: 048
     Dates: start: 20091125, end: 20091126
  5. TAMIFLU [Suspect]
     Dosage: DRUG NAME: TAMIFLU DRY SYRUP 3% (OSELTAMIVIR).
     Route: 048
     Dates: start: 20091127, end: 20091127
  6. ASVERIN [Concomitant]
     Route: 048
     Dates: start: 20091124, end: 20091201
  7. BISOLVON [Concomitant]
     Route: 048
     Dates: start: 20091124, end: 20091201
  8. MUCODYNE [Concomitant]
     Route: 048
     Dates: start: 20091124, end: 20091201
  9. PERIACTIN [Concomitant]
     Route: 048
     Dates: start: 20091124, end: 20091201

REACTIONS (2)
  - SLEEP TERROR [None]
  - SOMNAMBULISM [None]
